FAERS Safety Report 14033947 (Version 1)
Quarter: 2017Q4

REPORT INFORMATION
  Report Type: Spontaneous
  Country: SG (occurrence: SG)
  Receive Date: 20171003
  Receipt Date: 20171003
  Transmission Date: 20180321
  Serious: Yes (Other)
  Sender: FDA-Public Use
  Company Number: SG-ABBVIE-17P-141-2115415-00

PATIENT
  Age: 11 Year
  Sex: Male

DRUGS (3)
  1. SUXAMETHONIUM [Suspect]
     Active Substance: SUCCINYLCHOLINE
     Indication: PRODUCT USED FOR UNKNOWN INDICATION
     Route: 065
  2. SUCCINYLCHOLINE [Suspect]
     Active Substance: SUCCINYLCHOLINE
     Indication: PRODUCT USED FOR UNKNOWN INDICATION
     Route: 065
  3. SEVOFRANE [Suspect]
     Active Substance: SEVOFLURANE
     Indication: PRODUCT USED FOR UNKNOWN INDICATION
     Route: 065

REACTIONS (3)
  - Hyperthermia malignant [Unknown]
  - Duchenne muscular dystrophy [Unknown]
  - Pyrexia [Unknown]

NARRATIVE: CASE EVENT DATE: 20170101
